FAERS Safety Report 13073142 (Version 1)
Quarter: 2016Q4

REPORT INFORMATION
  Report Type: Spontaneous
  Country: PT (occurrence: PT)
  Receive Date: 20161229
  Receipt Date: 20161229
  Transmission Date: 20170207
  Serious: Yes (Other)
  Sender: FDA-Public Use
  Company Number: PT-DSJP-DSE-2016-143831

PATIENT

DRUGS (5)
  1. ZOLNOR [Suspect]
     Active Substance: AMLODIPINE BESYLATE\OLMESARTAN MEDOXOMIL
     Indication: HYPERTENSION
     Route: 048
     Dates: start: 20120508, end: 20161024
  2. METOPROLOL. [Concomitant]
     Active Substance: METOPROLOL
     Indication: HYPERTENSION
     Dates: start: 20160629
  3. TAMSULOSIN [Concomitant]
     Active Substance: TAMSULOSIN
     Indication: PRODUCT USED FOR UNKNOWN INDICATION
     Dates: start: 20150701
  4. CARTIA                             /00002701/ [Concomitant]
     Active Substance: ASPIRIN
     Indication: ARRHYTHMIA
     Dates: start: 20160720
  5. ATORVASTATIN [Concomitant]
     Active Substance: ATORVASTATIN
     Indication: DYSLIPIDAEMIA
     Dates: start: 20120214

REACTIONS (3)
  - Drug ineffective [Recovered/Resolved]
  - Hypertonic bladder [Recovered/Resolved]
  - Suprapubic pain [Recovered/Resolved]

NARRATIVE: CASE EVENT DATE: 20161024
